FAERS Safety Report 5013471-7 (Version None)
Quarter: 2006Q2

REPORT INFORMATION
  Report Type: 
  Country: None (occurrence: None)
  Receive Date: 20060525
  Receipt Date: 20060525
  Transmission Date: 20061013
  Serious: No
  Sender: FDA-Public Use
  Company Number: None

PATIENT
  Age: 34 Year
  Sex: Male

DRUGS (1)
  1. AVONEX [Suspect]
     Indication: MULTIPLE SCLEROSIS
     Dosage: 30 MCG   ONCE WEEKLY   IM  OVER 5 YEARS
     Route: 030

REACTIONS (3)
  - MOVEMENT DISORDER [None]
  - MUSCLE SPASTICITY [None]
  - PAIN IN EXTREMITY [None]
